FAERS Safety Report 4436171-0 (Version None)
Quarter: 2004Q3

REPORT INFORMATION
  Report Type: 
  Country: None (occurrence: None)
  Receive Date: 20040830
  Receipt Date: 20040503
  Transmission Date: 20050211
  Serious: Yes (Hospitalization)
  Sender: FDA-Public Use
  Company Number: US-BRISTOL-MYERS SQUIBB COMPANY-12577086

PATIENT
  Age: 77 Year
  Sex: Male

DRUGS (6)
  1. ERBITUX [Suspect]
     Indication: COLON CANCER METASTATIC
     Route: 042
     Dates: start: 20040315, end: 20040315
  2. BENADRYL [Concomitant]
     Indication: PREMEDICATION
     Route: 040
     Dates: start: 20040315, end: 20040315
  3. ASPIRIN [Concomitant]
  4. CELEBREX [Concomitant]
  5. LOPRIL TABS [Concomitant]
  6. PACERONE [Concomitant]

REACTIONS (1)
  - ANAPHYLACTIC REACTION [None]
